FAERS Safety Report 11988917 (Version 1)
Quarter: 2016Q1

REPORT INFORMATION
  Report Type: Spontaneous
  Country: US (occurrence: US)
  Receive Date: 20160202
  Receipt Date: 20160202
  Transmission Date: 20160526
  Serious: No
  Sender: FDA-Public Use
  Company Number: US-ASTRAZENECA-2016SE07976

PATIENT
  Age: 21276 Day
  Sex: Male
  Weight: 68.9 kg

DRUGS (4)
  1. DULERA [Concomitant]
     Active Substance: FORMOTEROL FUMARATE DIHYDRATE\MOMETASONE FUROATE
     Indication: LUNG DISORDER
     Route: 055
     Dates: start: 201501
  2. ALBUTEROL. [Concomitant]
     Active Substance: ALBUTEROL
     Indication: DYSPNOEA
     Dosage: UNKNOWN DOSE, AS REQUIRED
     Route: 055
  3. TUDORZA PRESSAIR [Suspect]
     Active Substance: ACLIDINIUM BROMIDE
     Indication: CHRONIC OBSTRUCTIVE PULMONARY DISEASE
     Route: 055
     Dates: start: 201501
  4. DUONEB [Concomitant]
     Active Substance: ALBUTEROL SULFATE\IPRATROPIUM BROMIDE
     Indication: LUNG DISORDER
     Route: 055
     Dates: start: 201506

REACTIONS (4)
  - Device defective [Unknown]
  - Dyspnoea [Unknown]
  - Drug dose omission [Not Recovered/Not Resolved]
  - Alpha-1 anti-trypsin deficiency [Not Recovered/Not Resolved]

NARRATIVE: CASE EVENT DATE: 201506
